FAERS Safety Report 12949861 (Version 4)
Quarter: 2018Q4

REPORT INFORMATION
  Report Type: Spontaneous
  Country: BR (occurrence: BR)
  Receive Date: 20161117
  Receipt Date: 20181115
  Transmission Date: 20190204
  Serious: Yes (Hospitalization, Other)
  Sender: FDA-Public Use
  Company Number: BR-PFIZER INC-2015222747

PATIENT
  Age: 44 Year
  Sex: Female
  Weight: 59 kg

DRUGS (5)
  1. FRONTAL SL [Suspect]
     Active Substance: ALPRAZOLAM
     Indication: HYPERTENSION
     Dosage: 0.5 MG, ONE TABLET, AS NEEDED
     Route: 060
     Dates: start: 2015, end: 201809
  2. FRONTAL SL [Suspect]
     Active Substance: ALPRAZOLAM
     Indication: DEPRESSION
     Dosage: 0.25 MG, DAILY (HALF OF ONE TABLET) AT NIGHT
     Dates: start: 201809
  3. BENICAR [Concomitant]
     Active Substance: OLMESARTAN MEDOXOMIL
     Indication: HYPERTENSION
     Dosage: 40MG, 1 TABLET A DAY
     Dates: start: 2015
  4. FRONTAL XR [Suspect]
     Active Substance: ALPRAZOLAM
     Indication: HYPERTENSION
     Dosage: 0.5 MG, 1 TABLET AT NIGHT
     Route: 048
     Dates: start: 2015, end: 201809
  5. FRONTAL XR [Suspect]
     Active Substance: ALPRAZOLAM
     Indication: DEPRESSION

REACTIONS (14)
  - Pain in extremity [Recovered/Resolved]
  - Tremor [Recovered/Resolved]
  - Fall [Recovered/Resolved]
  - Drug withdrawal syndrome [Recovered/Resolved]
  - Loss of personal independence in daily activities [Recovered/Resolved]
  - Drug dependence [Not Recovered/Not Resolved]
  - Joint injury [Recovered/Resolved]
  - Feeling abnormal [Recovered/Resolved]
  - Memory impairment [Recovered/Resolved]
  - Headache [Recovered/Resolved]
  - Leiomyoma [Recovered/Resolved]
  - Gait inability [Recovered/Resolved]
  - Terminal insomnia [Not Recovered/Not Resolved]
  - Intentional product misuse [Not Recovered/Not Resolved]

NARRATIVE: CASE EVENT DATE: 2016
